FAERS Safety Report 15696400 (Version 1)
Quarter: 2018Q4

REPORT INFORMATION
  Report Type: Other
  Country: CA (occurrence: CA)
  Receive Date: 20181206
  Receipt Date: 20181206
  Transmission Date: 20190205
  Serious: Yes (Hospitalization)
  Sender: FDA-Public Use
  Company Number: CA-HLSUS-2018-CA-001549

PATIENT
  Age: 56 Year
  Sex: Male

DRUGS (16)
  1. PREGABLIN [Concomitant]
     Active Substance: PREGABALIN
  2. SYMBICORT [Concomitant]
     Active Substance: BUDESONIDE\FORMOTEROL FUMARATE DIHYDRATE
  3. PRAVASTATIN. [Concomitant]
     Active Substance: PRAVASTATIN
  4. SALOFALK [Concomitant]
     Active Substance: MESALAMINE
  5. PREDNISONE. [Concomitant]
     Active Substance: PREDNISONE
  6. FOLIC ACID. [Concomitant]
     Active Substance: FOLIC ACID
  7. ATIVAN [Concomitant]
     Active Substance: LORAZEPAM
     Dosage: 5 MG DAILY PRN
  8. ADVAGRAF [Concomitant]
     Active Substance: TACROLIMUS
  9. RISEDRONATE [Concomitant]
     Active Substance: RISEDRONATE SODIUM
  10. NASONEX [Concomitant]
     Active Substance: MOMETASONE FUROATE
  11. MAGNESIUM [Concomitant]
     Active Substance: MAGNESIUM
  12. SODIUM DOCUSATE [Concomitant]
     Active Substance: DOCUSATE SODIUM
  13. LIPIDIL [Concomitant]
     Active Substance: FENOFIBRATE
  14. CLOZARIL [Suspect]
     Active Substance: CLOZAPINE
     Indication: SCHIZOAFFECTIVE DISORDER BIPOLAR TYPE
     Dosage: 25 MG AT NOON AND 100 MG AT SUPPER
     Route: 048
     Dates: start: 20171106
  15. PANTOPRAZOLE [Concomitant]
     Active Substance: PANTOPRAZOLE
  16. MCAL [Concomitant]

REACTIONS (2)
  - Sedation [None]
  - Pulmonary embolism [None]

NARRATIVE: CASE EVENT DATE: 20181003
